FAERS Safety Report 22945595 (Version 5)
Quarter: 2025Q3

REPORT INFORMATION
  Report Type: Report from Study
  Country: CA (occurrence: CA)
  Receive Date: 20230914
  Receipt Date: 20250714
  Transmission Date: 20251020
  Serious: Yes (Other)
  Sender: SANDOZ
  Company Number: CA-002147023-NVSC2021CA120972

PATIENT
  Age: 79 Year
  Sex: Male

DRUGS (12)
  1. ERELZI [Suspect]
     Active Substance: ETANERCEPT-SZZS
     Dosage: 50 MG, QMO
     Route: 058
     Dates: start: 202211
  2. ERELZI [Suspect]
     Active Substance: ETANERCEPT-SZZS
     Indication: Ankylosing spondylitis
     Dosage: 50 MG, QW, PRE-FILLED PEN (CAN SPACE INJECTIONS Q2-3 WEEKS)
     Route: 058
     Dates: start: 20210518
  3. ERELZI [Suspect]
     Active Substance: ETANERCEPT-SZZS
     Dosage: 50 MG, Q3W,EVERY 3 WEEKS.
     Route: 058
  4. ERELZI [Suspect]
     Active Substance: ETANERCEPT-SZZS
     Route: 058
     Dates: start: 20210518
  5. ADVIL [Concomitant]
     Active Substance: IBUPROFEN
     Indication: Product used for unknown indication
     Route: 065
  6. BIAXIN [Concomitant]
     Active Substance: CLARITHROMYCIN
     Dosage: 250 MG, QD (FOR ONE MONTH)
     Route: 048
  7. BIAXIN [Concomitant]
     Active Substance: CLARITHROMYCIN
     Indication: Antibiotic therapy
     Dosage: 500 MG, BID (FOR 10 DAYS)
     Route: 048
  8. CELEBREX [Concomitant]
     Active Substance: CELECOXIB
     Indication: Product used for unknown indication
     Route: 065
  9. IMDUR [Concomitant]
     Active Substance: ISOSORBIDE MONONITRATE
     Indication: Product used for unknown indication
     Route: 048
     Dates: start: 1996
  10. INSULIN NOS [Concomitant]
     Active Substance: INSULIN NOS
     Indication: Product used for unknown indication
     Route: 058
     Dates: start: 2019
  11. NAPROXEN [Concomitant]
     Active Substance: NAPROXEN
     Indication: Product used for unknown indication
     Route: 065
  12. NORVASC [Concomitant]
     Active Substance: AMLODIPINE BESYLATE
     Indication: Product used for unknown indication
     Route: 048
     Dates: start: 1996

REACTIONS (26)
  - Pulmonary oedema [Unknown]
  - Cardiac failure [Unknown]
  - Ankylosing spondylitis [Unknown]
  - Temperature intolerance [Unknown]
  - Back pain [Not Recovered/Not Resolved]
  - Renal disorder [Unknown]
  - Nausea [Recovered/Resolved]
  - Balance disorder [Unknown]
  - Joint swelling [Recovered/Resolved]
  - Dizziness postural [Unknown]
  - Cardiac disorder [Unknown]
  - Peripheral swelling [Unknown]
  - Pain [Unknown]
  - Contusion [Unknown]
  - Dysania [Unknown]
  - Arthralgia [Not Recovered/Not Resolved]
  - Chest discomfort [Recovered/Resolved]
  - Fatigue [Unknown]
  - Headache [Recovered/Resolved]
  - Rash [Unknown]
  - Oral infection [Unknown]
  - Pharyngitis [Unknown]
  - Injection site haemorrhage [Unknown]
  - Therapeutic product effect decreased [Unknown]
  - Off label use [Unknown]
  - Inappropriate schedule of product administration [Unknown]

NARRATIVE: CASE EVENT DATE: 20210519
